FAERS Safety Report 6179349-0 (Version None)
Quarter: 2009Q2

REPORT INFORMATION
  Report Type: 
  Country: None (occurrence: None)
  Receive Date: 20090501
  Receipt Date: 20090501
  Transmission Date: 20091009
  Serious: No
  Sender: FDA-Public Use
  Company Number: None

PATIENT
  Age: 84 Year
  Sex: Female
  Weight: 64.4108 kg

DRUGS (1)
  1. IN-FED 50 MG TEST DOSE [Suspect]
     Dosage: 50 MG INFED IV
     Route: 042

REACTIONS (4)
  - BACK PAIN [None]
  - DIZZINESS [None]
  - INFUSION RELATED REACTION [None]
  - MALAISE [None]
